FAERS Safety Report 7553638-7 (Version None)
Quarter: 2011Q2

REPORT INFORMATION
  Report Type: 
  Country: None (occurrence: None)
  Receive Date: 20110617
  Receipt Date: 20100603
  Transmission Date: 20111010
  Serious: No
  Sender: FDA-Public Use
  Company Number: US-MYLANLABS-2010S1010011

PATIENT
  Age: 36 Year
  Sex: Male

DRUGS (3)
  1. OMEPRAZOLE [Suspect]
     Indication: GASTROOESOPHAGEAL REFLUX DISEASE
     Route: 048
     Dates: start: 20100602, end: 20100602
  2. CLONAZEPAM [Concomitant]
  3. MIRALAX [Concomitant]

REACTIONS (2)
  - DIZZINESS [None]
  - MUSCULOSKELETAL STIFFNESS [None]
